FAERS Safety Report 19478542 (Version 2)
Quarter: 2021Q3

REPORT INFORMATION
  Report Type: Spontaneous
  Country: US (occurrence: US)
  Receive Date: 20210630
  Receipt Date: 20210730
  Transmission Date: 20211014
  Serious: Yes (Other)
  Sender: FDA-Public Use
  Company Number: US-BAUSCH-BL-2021-021759

PATIENT
  Age: 34 Year
  Sex: Male

DRUGS (2)
  1. ATIVAN [Suspect]
     Active Substance: LORAZEPAM
     Indication: MOVEMENT DISORDER
     Route: 065
  2. ATIVAN [Suspect]
     Active Substance: LORAZEPAM
     Indication: PRODUCT USE IN UNAPPROVED INDICATION

REACTIONS (3)
  - Fall [Unknown]
  - Product use in unapproved indication [Unknown]
  - Facial bones fracture [Unknown]
